FAERS Safety Report 5471015-X (Version None)
Quarter: 2007Q3

REPORT INFORMATION
  Report Type: 
  Country: None (occurrence: None)
  Receive Date: 20070928
  Receipt Date: 20070925
  Transmission Date: 20080115
  Serious: Yes (Hospitalization, Disabling)
  Sender: FDA-Public Use
  Company Number: B0483226A

PATIENT
  Age: 72 Year
  Sex: Male
  Weight: 50 kg

DRUGS (15)
  1. VALTREX [Suspect]
     Indication: HERPES ZOSTER
     Dosage: 1000MG PER DAY
     Route: 048
     Dates: start: 20070807, end: 20070811
  2. ARASENA-A [Concomitant]
     Indication: HERPES ZOSTER
     Route: 061
     Dates: start: 20070807
  3. METHYCOBAL [Concomitant]
     Indication: NEUROPATHY PERIPHERAL
     Dosage: 1500MCG PER DAY
     Route: 048
  4. ITOROL [Concomitant]
     Indication: ANGINA PECTORIS
     Dosage: 40MG PER DAY
     Route: 048
  5. FOLIAMIN [Concomitant]
     Dosage: 15MG PER DAY
     Route: 048
  6. DIOVAN [Concomitant]
     Indication: HYPERTENSION
     Dosage: 160MG PER DAY
     Route: 048
  7. DOXAZOSIN MESYLATE [Concomitant]
     Indication: HYPERTENSION
     Dosage: 2MG PER DAY
     Route: 048
  8. ONEALFA [Concomitant]
     Indication: OSTEOPOROSIS
     Dosage: .25MG PER DAY
     Route: 048
  9. THEO-DUR [Concomitant]
     Indication: ASTHMA
     Dosage: 200MG PER DAY
     Route: 048
  10. MUCODYNE [Concomitant]
     Indication: ASTHMA
     Dosage: 750MG PER DAY
     Route: 048
  11. COLDRIN [Concomitant]
     Indication: GASTRITIS
     Dosage: 37.5MG PER DAY
     Route: 048
  12. ADALAT [Concomitant]
     Indication: HYPERTENSION
     Dosage: 40MG PER DAY
     Route: 048
  13. FERROMIA [Concomitant]
     Dosage: 100MG PER DAY
     Route: 048
  14. SENNOSIDE [Concomitant]
     Indication: CONSTIPATION
     Dosage: 24MG PER DAY
     Route: 048
  15. ALOSENN [Concomitant]
     Indication: CONSTIPATION
     Dosage: .5MG PER DAY
     Route: 048

REACTIONS (2)
  - MENTAL DISORDER [None]
  - RESTLESSNESS [None]
